FAERS Safety Report 9374607 (Version 1)
Quarter: 2013Q2

REPORT INFORMATION
  Report Type: Spontaneous
  Country: FR (occurrence: FR)
  Receive Date: 20130628
  Receipt Date: 20130628
  Transmission Date: 20140414
  Serious: Yes (Death, Hospitalization)
  Sender: FDA-Public Use
  Company Number: FR-PFIZER INC-2013192083

PATIENT
  Age: 84 Year
  Sex: Female

DRUGS (4)
  1. CORDARONE [Suspect]
     Indication: ARRHYTHMIA
     Dosage: 200 MG (1 DOSE FORM), DAILY
     Route: 048
     Dates: start: 20130305
  2. PRADAXA [Interacting]
     Indication: CEREBROVASCULAR ACCIDENT
     Dosage: 220 MG (2 DOSE FORM), DAILY
     Route: 048
     Dates: start: 20130305
  3. PRAVASTATIN SODIUM [Concomitant]
     Dosage: UNK
     Dates: start: 20130305
  4. KARDEGIC [Concomitant]
     Dosage: UNK
     Dates: end: 20130305

REACTIONS (2)
  - Drug interaction [Fatal]
  - Cerebral haemorrhage [Fatal]
